FAERS Safety Report 9696303 (Version 2)
Quarter: 2013Q4

REPORT INFORMATION
  Report Type: Spontaneous
  Country: US (occurrence: US)
  Receive Date: 20131119
  Receipt Date: 20131223
  Transmission Date: 20140711
  Serious: Yes (Hospitalization, Other)
  Sender: FDA-Public Use
  Company Number: US-PFIZER INC-2013328313

PATIENT
  Age: 61 Year
  Sex: Female
  Weight: 72.56 kg

DRUGS (3)
  1. LIPITOR [Suspect]
     Indication: BLOOD CHOLESTEROL INCREASED
     Dosage: 10 MG, DAILY
  2. DIOVAN [Concomitant]
     Indication: HYPERTENSION
     Dosage: UNK
  3. NORVASC [Concomitant]
     Dosage: UNK

REACTIONS (4)
  - Cardiac disorder [Unknown]
  - Myocardial infarction [Unknown]
  - Cardiac disorder [Unknown]
  - Expired drug administered [Unknown]
